FAERS Safety Report 6626414-7 (Version None)
Quarter: 2010Q1

REPORT INFORMATION
  Report Type: 
  Country: None (occurrence: None)
  Receive Date: 20100310
  Receipt Date: 20100303
  Transmission Date: 20100710
  Serious: Yes (Other)
  Sender: FDA-Public Use
  Company Number: DE-AMGEN-QUU397174

PATIENT
  Age: 15 Year
  Sex: Female
  Weight: 40 kg

DRUGS (1)
  1. ARANESP [Suspect]
     Indication: DIALYSIS
     Dates: start: 20080101

REACTIONS (2)
  - APLASIA PURE RED CELL [None]
  - DRUG INEFFECTIVE [None]
